FAERS Safety Report 9143588 (Version 1)
Quarter: 2013Q1

REPORT INFORMATION
  Report Type: Spontaneous
  Country: US (occurrence: US)
  Receive Date: 20130306
  Receipt Date: 20130306
  Transmission Date: 20140127
  Serious: No
  Sender: FDA-Public Use
  Company Number: US-ASTRAZENECA-2013SE11467

PATIENT
  Age: 55 Year
  Sex: Male

DRUGS (8)
  1. LISINOPRIL [Suspect]
     Route: 048
  2. CRESTOR [Suspect]
     Route: 048
     Dates: start: 20130206, end: 20130212
  3. SYNTHROID [Concomitant]
  4. LANTUS [Concomitant]
  5. CITALOPRAM HBR [Concomitant]
  6. DOXAZOSIN MESYLATE [Concomitant]
  7. WELCHOL [Concomitant]
  8. NOVALOG [Concomitant]

REACTIONS (2)
  - Pain [Recovering/Resolving]
  - Fatigue [Recovering/Resolving]
